FAERS Safety Report 7717195-4 (Version None)
Quarter: 2011Q3

REPORT INFORMATION
  Report Type: 
  Country: None (occurrence: None)
  Receive Date: 20110826
  Receipt Date: 20110826
  Transmission Date: 20111222
  Serious: Yes (Death, Hospitalization)
  Sender: FDA-Public Use
  Company Number: None

PATIENT
  Sex: Female
  Weight: 99.7 kg

DRUGS (1)
  1. TAXOL [Suspect]
     Dosage: 300 MG
     Dates: end: 20110519

REACTIONS (21)
  - NAUSEA [None]
  - LABORATORY TEST ABNORMAL [None]
  - SEPSIS [None]
  - BLOOD CULTURE POSITIVE [None]
  - VAGINAL DISCHARGE [None]
  - ANAEMIA [None]
  - RENAL FAILURE ACUTE [None]
  - INTESTINAL PERFORATION [None]
  - GENERAL PHYSICAL HEALTH DETERIORATION [None]
  - VOMITING [None]
  - LIVER FUNCTION TEST ABNORMAL [None]
  - OVARIAN CANCER [None]
  - NEOPLASM PROGRESSION [None]
  - DYSPNOEA [None]
  - TERMINAL STATE [None]
  - ABDOMINAL DISCOMFORT [None]
  - PYREXIA [None]
  - ABDOMINAL DISTENSION [None]
  - PULMONARY EMBOLISM [None]
  - METASTASES TO LIVER [None]
  - CULTURE URINE POSITIVE [None]
